FAERS Safety Report 8784002 (Version 1)
Quarter: 2012Q4

REPORT INFORMATION
  Report Type: 
  Country: TP (occurrence: TP)
  Receive Date: 20120913
  Receipt Date: 20120913
  Transmission Date: 20130627
  Serious: Yes (Death, Other)
  Sender: FDA-Public Use
  Company Number: PHHY2006TP009728

PATIENT
  Sex: Female

DRUGS (1)
  1. GLIVEC [Suspect]
     Indication: CHRONIC MYELOID LEUKAEMIA
     Dosage: 800 mg/d
     Dates: start: 20060224

REACTIONS (5)
  - Shock [Fatal]
  - Blast crisis in myelogenous leukaemia [Fatal]
  - Splenomegaly [Unknown]
  - Pancytopenia [Unknown]
  - Pyrexia [Unknown]
